FAERS Safety Report 25226528 (Version 2)
Quarter: 2025Q2

REPORT INFORMATION
  Report Type: Spontaneous
  Country: FR (occurrence: FR)
  Receive Date: 20250422
  Receipt Date: 20250529
  Transmission Date: 20250717
  Serious: Yes (Other)
  Sender: MYLAN
  Company Number: None

PATIENT
  Age: 38 Year
  Sex: Male

DRUGS (8)
  1. ACETAMINOPHEN [Suspect]
     Active Substance: ACETAMINOPHEN
     Indication: Product used for unknown indication
     Dosage: 4 GRAM, QD
     Dates: start: 202412
  2. ACETAMINOPHEN [Suspect]
     Active Substance: ACETAMINOPHEN
     Dosage: 4 GRAM, QD
     Route: 045
     Dates: start: 202412
  3. ACETAMINOPHEN [Suspect]
     Active Substance: ACETAMINOPHEN
     Dosage: 4 GRAM, QD
     Route: 045
     Dates: start: 202412
  4. ACETAMINOPHEN [Suspect]
     Active Substance: ACETAMINOPHEN
     Dosage: 4 GRAM, QD
     Dates: start: 202412
  5. COCAINE [Suspect]
     Active Substance: COCAINE
     Indication: Product used for unknown indication
  6. COCAINE [Suspect]
     Active Substance: COCAINE
     Route: 065
  7. COCAINE [Suspect]
     Active Substance: COCAINE
     Route: 065
  8. COCAINE [Suspect]
     Active Substance: COCAINE

REACTIONS (9)
  - Substance use disorder [Unknown]
  - Drug use disorder [Unknown]
  - Nasal septum perforation [Not Recovered/Not Resolved]
  - Nasal inflammation [Not Recovered/Not Resolved]
  - Rhinalgia [Unknown]
  - Pain [Not Recovered/Not Resolved]
  - Hepatitis [Not Recovered/Not Resolved]
  - Condition aggravated [Not Recovered/Not Resolved]
  - Intentional product misuse [Unknown]

NARRATIVE: CASE EVENT DATE: 20241201
